FAERS Safety Report 8479999-2 (Version None)
Quarter: 2012Q2

REPORT INFORMATION
  Report Type: 
  Country: None (occurrence: None)
  Receive Date: 20120629
  Receipt Date: 20120625
  Transmission Date: 20120825
  Serious: Yes (Life-Threatening, Hospitalization)
  Sender: FDA-Public Use
  Company Number: RO-ABBOTT-12P-135-0949331-00

PATIENT
  Sex: Female
  Weight: 42 kg

DRUGS (5)
  1. HUMIRA [Suspect]
     Indication: RHEUMATOID ARTHRITIS
     Route: 058
     Dates: start: 20110202, end: 20120401
  2. PREDNISOLONE [Suspect]
     Indication: RHEUMATOID ARTHRITIS
     Dosage: 10 MG DAILY
     Route: 048
     Dates: start: 20070301, end: 20120401
  3. ARAVA [Concomitant]
     Indication: RHEUMATOID ARTHRITIS
  4. CARBAMAZEPINE [Concomitant]
     Indication: EPILEPSY
     Dosage: 300 MG ( 1 TABLET ) DAILY
     Route: 048
  5. LEFLUNOMIDE [Suspect]
     Indication: RHEUMATOID ARTHRITIS
     Dosage: 20 MG DAILY
     Route: 048
     Dates: start: 20070101, end: 20120401

REACTIONS (28)
  - PYREXIA [None]
  - PSEUDOMONAL SEPSIS [None]
  - CHILLS [None]
  - HAND DEFORMITY [None]
  - TACHYCARDIA [None]
  - TONGUE DISORDER [None]
  - PLEURISY [None]
  - POLYOMAVIRUS TEST POSITIVE [None]
  - SACROILIITIS [None]
  - WEIGHT DECREASED [None]
  - LUNG NEOPLASM [None]
  - DEFORMITY THORAX [None]
  - MOBILITY DECREASED [None]
  - LYMPHADENOPATHY [None]
  - ASTHENIA [None]
  - KYPHOSIS [None]
  - IMMUNODEFICIENCY [None]
  - FAT TISSUE INCREASED [None]
  - INTERSTITIAL LUNG DISEASE [None]
  - PALLOR [None]
  - EMPHYSEMA [None]
  - UNEVALUABLE EVENT [None]
  - MICROCYTIC ANAEMIA [None]
  - CACHEXIA [None]
  - CHEST PAIN [None]
  - BACK PAIN [None]
  - COUGH [None]
  - PHARYNGEAL ERYTHEMA [None]
